FAERS Safety Report 13267193 (Version 1)
Quarter: 2017Q1

REPORT INFORMATION
  Report Type: Spontaneous
  Country: US (occurrence: US)
  Receive Date: 20170223
  Receipt Date: 20170223
  Transmission Date: 20170428
  Serious: No
  Sender: FDA-Public Use
  Company Number: None

PATIENT
  Age: 47 Year
  Sex: Female

DRUGS (1)
  1. HUMIRA [Suspect]
     Active Substance: ADALIMUMAB
     Indication: PSORIATIC ARTHROPATHY
     Route: 058
     Dates: start: 20161013, end: 20170220

REACTIONS (5)
  - Fatigue [None]
  - Psoriatic arthropathy [None]
  - Impaired work ability [None]
  - Depression [None]
  - Asthenia [None]

NARRATIVE: CASE EVENT DATE: 20170115
